FAERS Safety Report 9638759 (Version 2)
Quarter: 2014Q1

REPORT INFORMATION
  Report Type: Spontaneous
  Country: US (occurrence: US)
  Receive Date: 20131022
  Receipt Date: 20140122
  Transmission Date: 20141002
  Serious: No
  Sender: FDA-Public Use
  Company Number: US-BRISTOL-MYERS SQUIBB COMPANY-19209394

PATIENT
  Age: 75 Year
  Sex: Female
  Weight: 71.2 kg

DRUGS (6)
  1. ELIQUIS [Suspect]
     Indication: ATRIAL FIBRILLATION
     Dosage: TABS
     Route: 048
     Dates: start: 20130808, end: 20130906
  2. LORAZEPAM [Concomitant]
  3. ATENOLOL [Concomitant]
  4. TRIAMTERENE [Concomitant]
     Dosage: 1DF: 37.5 MG (1/2) DAILY
  5. HCTZ [Concomitant]
  6. CLARITIN [Concomitant]

REACTIONS (4)
  - Malaise [Unknown]
  - Asthenia [Unknown]
  - Nausea [Unknown]
  - Aphagia [Unknown]
